FAERS Safety Report 8284723-2 (Version None)
Quarter: 2012Q2

REPORT INFORMATION
  Report Type: 
  Country: None (occurrence: None)
  Receive Date: 20120413
  Receipt Date: 20110713
  Transmission Date: 20120825
  Serious: No
  Sender: FDA-Public Use
  Company Number: US-ASTRAZENECA-2011SE41945

PATIENT
  Age: 80 Year
  Sex: Female
  Weight: 47.2 kg

DRUGS (17)
  1. FISH OIL [Concomitant]
  2. CALCIUM PLUS D [Concomitant]
  3. MIRALAX [Concomitant]
  4. MULTI-VITAMIN [Concomitant]
  5. APAP TAB [Concomitant]
  6. GLUCOSAMINE [Concomitant]
  7. ZANTAC [Concomitant]
  8. NEXIUM [Suspect]
     Route: 048
  9. NEXIUM [Suspect]
     Route: 048
  10. ALOE VERA [Concomitant]
  11. MAGNESIUM [Concomitant]
  12. SEROQUEL [Concomitant]
  13. PULMICORT [Concomitant]
  14. BIOTIN [Concomitant]
  15. ASTELLIN [Concomitant]
  16. VITAMIN D [Concomitant]
  17. LORAZEPAM [Concomitant]

REACTIONS (5)
  - DRY MOUTH [None]
  - ADVERSE EVENT [None]
  - CONSTIPATION [None]
  - GASTROOESOPHAGEAL REFLUX DISEASE [None]
  - DIARRHOEA [None]
